FAERS Safety Report 9667797 (Version 1)
Quarter: 2013Q4

REPORT INFORMATION
  Report Type: Spontaneous
  Country: US (occurrence: None)
  Receive Date: 20131101
  Receipt Date: 20131101
  Transmission Date: 20140711
  Serious: Yes (Other)
  Sender: FDA-Public Use
  Company Number: 2013SA109962

PATIENT
  Age: 44 Year
  Sex: Male

DRUGS (1)
  1. ICY HOT [Suspect]
     Dates: start: 20131022

REACTIONS (1)
  - Skin burning sensation [None]
